FAERS Safety Report 7998161-0 (Version None)
Quarter: 2011Q4

REPORT INFORMATION
  Report Type: 
  Country: None (occurrence: None)
  Receive Date: 20111221
  Receipt Date: 20110316
  Transmission Date: 20120403
  Serious: No
  Sender: FDA-Public Use
  Company Number: US-GLAXOSMITHKLINE-A0918529A

PATIENT
  Age: 59 Year
  Sex: Female

DRUGS (7)
  1. JANUVIA [Concomitant]
  2. ENALAPRIL MALEATE [Concomitant]
  3. GLIPIZIDE [Concomitant]
  4. LOVAZA [Suspect]
     Indication: BLOOD CHOLESTEROL INCREASED
     Dosage: 4CAP PER DAY
     Route: 048
     Dates: start: 20110201
  5. CYMBALTA [Concomitant]
  6. LAMICTAL [Concomitant]
  7. FUROSEMIDE [Concomitant]

REACTIONS (3)
  - INCORRECT STORAGE OF DRUG [None]
  - ABDOMINAL PAIN UPPER [None]
  - NAUSEA [None]
